FAERS Safety Report 12186530 (Version 7)
Quarter: 2018Q2

REPORT INFORMATION
  Report Type: Report from Study
  Country: DE (occurrence: DE)
  Receive Date: 20160317
  Receipt Date: 20180404
  Transmission Date: 20180711
  Serious: Yes (Hospitalization, Other)
  Sender: FDA-Public Use
  Company Number: DE-ROCHE-1726549

PATIENT
  Age: 56 Year
  Sex: Male

DRUGS (12)
  1. ROACTEMRA [Suspect]
     Active Substance: TOCILIZUMAB
     Indication: RHEUMATOID ARTHRITIS
     Route: 058
     Dates: start: 20140602, end: 20140722
  2. LISINOPRIL. [Concomitant]
     Active Substance: LISINOPRIL
     Indication: HYPERTENSION
  3. ADENURIC [Concomitant]
     Active Substance: FEBUXOSTAT
  4. ALLOPURINOL. [Concomitant]
     Active Substance: ALLOPURINOL
  5. ROACTEMRA [Suspect]
     Active Substance: TOCILIZUMAB
     Route: 058
     Dates: start: 20160401
  6. IBUPROFEN. [Concomitant]
     Active Substance: IBUPROFEN
     Route: 065
  7. ASPIRIN. [Concomitant]
     Active Substance: ASPIRIN
     Route: 065
  8. L-THYROXIN [Concomitant]
     Active Substance: LEVOTHYROXINE SODIUM
  9. PREDNISOLON [Concomitant]
     Active Substance: PREDNISOLONE
  10. INSULIN [Concomitant]
     Active Substance: INSULIN NOS
  11. ROACTEMRA [Suspect]
     Active Substance: TOCILIZUMAB
     Route: 058
     Dates: start: 20140904, end: 20160209
  12. SIMVAHEXAL [Concomitant]
     Active Substance: SIMVASTATIN

REACTIONS (11)
  - Joint swelling [Unknown]
  - Influenza [Recovering/Resolving]
  - Meteoropathy [Not Recovered/Not Resolved]
  - Benign neoplasm [Unknown]
  - Rheumatoid nodule [Not Recovered/Not Resolved]
  - Arthralgia [Unknown]
  - Arthralgia [Recovering/Resolving]
  - Musculoskeletal pain [Recovering/Resolving]
  - Weight increased [Not Recovered/Not Resolved]
  - Dyspnoea [Not Recovered/Not Resolved]
  - Thyroid mass [Unknown]

NARRATIVE: CASE EVENT DATE: 20140602
